FAERS Safety Report 9120009 (Version 2)
Quarter: 2013Q2

REPORT INFORMATION
  Report Type: Spontaneous
  Country: CN (occurrence: None)
  Receive Date: 20130130
  Receipt Date: 20130627
  Transmission Date: 20140414
  Serious: Yes (Other)
  Sender: FDA-Public Use
  Company Number: VAL_01353_2013

PATIENT
  Age: 42 Year
  Sex: Male
  Weight: 65 kg

DRUGS (2)
  1. LOTENSIN [Suspect]
     Indication: HYPERTENSION
     Route: 048
     Dates: start: 20110217, end: 20110217
  2. LOTENSIN [Suspect]
     Indication: CARDIAC FAILURE CONGESTIVE
     Route: 048
     Dates: start: 20110217, end: 20110217

REACTIONS (3)
  - Angioedema [None]
  - Lip oedema [None]
  - Face oedema [None]
